FAERS Safety Report 14025927 (Version 1)
Quarter: 2017Q3

REPORT INFORMATION
  Report Type: Report from Study
  Country: CN (occurrence: CN)
  Receive Date: 20170929
  Receipt Date: 20170929
  Transmission Date: 20171128
  Serious: Yes (Other)
  Sender: FDA-Public Use
  Company Number: CN-ELI_LILLY_AND_COMPANY-CN201709008189

PATIENT
  Age: 56 Year
  Sex: Male

DRUGS (2)
  1. OXALIPLATIN. [Concomitant]
     Active Substance: OXALIPLATIN
     Indication: COLON CANCER
     Dosage: UNK, UNKNOWN
     Route: 065
  2. CETUXIMAB. [Suspect]
     Active Substance: CETUXIMAB
     Indication: COLON CANCER
     Dosage: 250 MG/M2, WEEKLY (1/W) 400 MG (100 G/VIAL)
     Route: 065
     Dates: start: 20170603

REACTIONS (3)
  - Full blood count abnormal [Unknown]
  - White blood cell count decreased [Unknown]
  - Bone marrow failure [Unknown]

NARRATIVE: CASE EVENT DATE: 2017
